FAERS Safety Report 15095676 (Version 2)
Quarter: 2018Q3

REPORT INFORMATION
  Report Type: Spontaneous
  Country: US (occurrence: US)
  Receive Date: 20180702
  Receipt Date: 20180712
  Transmission Date: 20181010
  Serious: Yes (Hospitalization)
  Sender: FDA-Public Use
  Company Number: US-AMGEN-USASP2018088665

PATIENT
  Age: 17 Year
  Sex: Male

DRUGS (14)
  1. LISINOPRIL. [Concomitant]
     Active Substance: LISINOPRIL
     Indication: HYPERTENSION
     Dosage: 30 MG, QD
     Route: 048
  2. LISINOPRIL. [Concomitant]
     Active Substance: LISINOPRIL
     Indication: ANXIETY
  3. METOPROLOL. [Concomitant]
     Active Substance: METOPROLOL
     Indication: HYPERTENSION
     Dosage: 25 MG, QHS
  4. METOPROLOL. [Concomitant]
     Active Substance: METOPROLOL
     Indication: ANXIETY
  5. PSEUDOEPHEDRINE [Suspect]
     Active Substance: PSEUDOEPHEDRINE
     Indication: PRIAPISM
     Dosage: 60 MG, Q6H
     Route: 065
  6. CALCITRIOL. [Concomitant]
     Active Substance: CALCITRIOL
     Dosage: 0.2 MUG, QWK
  7. AMLODIPINE [Concomitant]
     Active Substance: AMLODIPINE BESYLATE
     Indication: ANXIETY
  8. HEPARIN [Concomitant]
     Active Substance: HEPARIN SODIUM
     Dosage: 1300 U (22.8 U/KG) LOAD AND 1300 U/H CONTINUOUS INFUSION
  9. AMLODIPINE [Concomitant]
     Active Substance: AMLODIPINE BESYLATE
     Indication: HYPERTENSION
     Dosage: 10 MG, BID
  10. RANITIDINE. [Concomitant]
     Active Substance: RANITIDINE
     Dosage: 75 MG, QD
  11. PROCRIT [Suspect]
     Active Substance: ERYTHROPOIETIN
     Dosage: UNK UNK, QWK (1,900 U (33 U/KG/DOSE, 80% OF THE PREVIOUS DOSE)
     Route: 065
  12. SEVELAMER [Concomitant]
     Active Substance: SEVELAMER
     Dosage: UNK
  13. PROCRIT [Suspect]
     Active Substance: ERYTHROPOIETIN
     Indication: PRODUCT USED FOR UNKNOWN INDICATION
     Dosage: UNK UNK, QWK (120 U/KG)
     Route: 065
  14. SODIUM FERRIC GLUCONATE COMPLEX. [Concomitant]
     Active Substance: SODIUM FERRIC GLUCONATE COMPLEX
     Dosage: 125 MG, Q2WK

REACTIONS (10)
  - Swollen tongue [Unknown]
  - Priapism [Unknown]
  - Feeling abnormal [Unknown]
  - Pressure of speech [Not Recovered/Not Resolved]
  - Dizziness [Unknown]
  - Pain in jaw [Recovered/Resolved]
  - Anxiety [Not Recovered/Not Resolved]
  - Dyspnoea [Unknown]
  - Paraesthesia oral [Unknown]
  - Hallucination [Recovered/Resolved]
